FAERS Safety Report 7993583-6 (Version None)
Quarter: 2011Q4

REPORT INFORMATION
  Report Type: 
  Country: None (occurrence: None)
  Receive Date: 20111219
  Receipt Date: 20111208
  Transmission Date: 20120403
  Serious: Yes (Hospitalization, Other)
  Sender: FDA-Public Use
  Company Number: US-ASTRAZENECA-2011SE74600

PATIENT
  Sex: Male

DRUGS (5)
  1. DIVALPROEX SODIUM [Concomitant]
     Indication: TREMOR
  2. DIVALPROEX SODIUM [Concomitant]
     Indication: PANIC ATTACK
  3. SEROQUEL [Suspect]
     Indication: BIPOLAR DISORDER
     Route: 048
  4. DIVALPROEX SODIUM [Concomitant]
     Indication: CONVULSION
  5. SEROQUEL [Suspect]
     Indication: CONVULSION
     Route: 048

REACTIONS (7)
  - THERAPEUTIC RESPONSE UNEXPECTED [None]
  - DRUG DOSE OMISSION [None]
  - INSOMNIA [None]
  - OFF LABEL USE [None]
  - CONVULSION [None]
  - BIPOLAR DISORDER [None]
  - TONGUE BITING [None]
